FAERS Safety Report 10371681 (Version 1)
Quarter: 2014Q3

REPORT INFORMATION
  Report Type: Spontaneous
  Country: US (occurrence: None)
  Receive Date: 20140807
  Receipt Date: 20140807
  Transmission Date: 20150326
  Serious: Yes (Other)
  Sender: FDA-Public Use
  Company Number: None

PATIENT
  Age: 52 Year
  Sex: Female
  Weight: 77.11 kg

DRUGS (9)
  1. AZELASTINE HCL [Suspect]
     Active Substance: AZELASTINE HYDROCHLORIDE
     Indication: SINUSITIS
     Dosage: 137 MCG PER 30ML 1 PUFF IN EACH NOSTRIL ONCE DAILY THROUGH THE NOSTRILS
     Route: 045
     Dates: start: 20120101, end: 20140705
  2. SUDAFED [Concomitant]
     Active Substance: PSEUDOEPHEDRINE HYDROCHLORIDE
  3. TYLENOL [Concomitant]
     Active Substance: ACETAMINOPHEN
  4. AZELASTINE HCL [Suspect]
     Active Substance: AZELASTINE HYDROCHLORIDE
     Indication: RHINITIS ALLERGIC
     Dosage: 137 MCG PER 30ML 1 PUFF IN EACH NOSTRIL ONCE DAILY THROUGH THE NOSTRILS
     Route: 045
     Dates: start: 20120101, end: 20140705
  5. AZELASTINE HCL [Suspect]
     Active Substance: AZELASTINE HYDROCHLORIDE
     Indication: NASAL CONGESTION
     Dosage: 137 MCG PER 30ML 1 PUFF IN EACH NOSTRIL ONCE DAILY THROUGH THE NOSTRILS
     Route: 045
     Dates: start: 20120101, end: 20140705
  6. MOTRIN [Concomitant]
     Active Substance: IBUPROFEN
  7. VITAMIN B12 [Concomitant]
     Active Substance: CYANOCOBALAMIN
  8. VITAMIN D [Concomitant]
     Active Substance: CHOLECALCIFEROL
  9. CENTRUM MULTIVITMAINS [Concomitant]

REACTIONS (2)
  - Vision blurred [None]
  - Decreased eye contact [None]

NARRATIVE: CASE EVENT DATE: 201204
